FAERS Safety Report 9451605 (Version 1)
Quarter: 2013Q3

REPORT INFORMATION
  Report Type: Spontaneous
  Country: JP (occurrence: JP)
  Receive Date: 20130811
  Receipt Date: 20130811
  Transmission Date: 20140515
  Serious: Yes (Other)
  Sender: FDA-Public Use
  Company Number: JP-CUBIST PHARMACEUTICALS, INC.-2013CBST000326

PATIENT
  Age: 78 Year
  Sex: Female

DRUGS (3)
  1. CUBICIN [Suspect]
     Indication: SEPSIS
     Dosage: UNK UNK, UNK
     Route: 041
  2. CUBICIN [Suspect]
     Indication: OFF LABEL USE
  3. SODIUM VALPROATE [Concomitant]
     Indication: EPILEPSY
     Dosage: UNK UNK, UNK
     Route: 048

REACTIONS (1)
  - Epilepsy [Unknown]
